FAERS Safety Report 8062199-8 (Version None)
Quarter: 2012Q1

REPORT INFORMATION
  Report Type: 
  Country: None (occurrence: None)
  Receive Date: 20120123
  Receipt Date: 20120113
  Transmission Date: 20120608
  Serious: Yes (Other)
  Sender: FDA-Public Use
  Company Number: US-BRISTOL-MYERS SQUIBB COMPANY-16349979

PATIENT
  Age: 52 Year
  Sex: Female
  Weight: 73 kg

DRUGS (2)
  1. LUVOX [Concomitant]
     Indication: OBSESSIVE-COMPULSIVE DISORDER
  2. ABILIFY [Suspect]
     Indication: OBSESSIVE-COMPULSIVE DISORDER
     Dosage: 10YRS AGO,DOSE CHND TO 30MG OD,20MG OD,THEN TO 15MG OD,OFF A YR AGO,RESD ON 15MG OD,OFF 1MONTH AGO

REACTIONS (4)
  - STOMATITIS [None]
  - LIP SWELLING [None]
  - CONVULSION [None]
  - INSOMNIA [None]
